FAERS Safety Report 8279308-8 (Version None)
Quarter: 2012Q2

REPORT INFORMATION
  Report Type: 
  Country: None (occurrence: None)
  Receive Date: 20120412
  Receipt Date: 20111118
  Transmission Date: 20120825
  Serious: Yes (Hospitalization)
  Sender: FDA-Public Use
  Company Number: US-ASTRAZENECA-2011SE58281

PATIENT
  Age: 86 Year
  Sex: Female

DRUGS (3)
  1. BENICAR [Concomitant]
  2. NEXIUM [Suspect]
     Dosage: UNKNOWN DOSE EVERY MORNING
     Route: 048
  3. PREVACID [Concomitant]

REACTIONS (2)
  - BLOOD PRESSURE ABNORMAL [None]
  - HYPERTENSION [None]
